FAERS Safety Report 18013257 (Version 4)
Quarter: 2021Q3

REPORT INFORMATION
  Report Type: Spontaneous
  Country: US (occurrence: US)
  Receive Date: 20200713
  Receipt Date: 20210728
  Transmission Date: 20211014
  Serious: Yes (Other)
  Sender: FDA-Public Use
  Company Number: US-PFIZER INC-2020250873

PATIENT
  Age: 50 Year
  Sex: Male

DRUGS (1)
  1. DILANTIN [Suspect]
     Active Substance: PHENYTOIN
     Indication: SEIZURE
     Dosage: 100 MG, 3X/DAY
     Route: 048

REACTIONS (4)
  - Diabetes mellitus [Unknown]
  - Speech disorder [Unknown]
  - Cerebrovascular accident [Unknown]
  - Illness [Unknown]

NARRATIVE: CASE EVENT DATE: 20201119
